FAERS Safety Report 7535852-X (Version None)
Quarter: 2011Q2

REPORT INFORMATION
  Report Type: 
  Country: None (occurrence: None)
  Receive Date: 20110609
  Receipt Date: 20110118
  Transmission Date: 20111010
  Serious: Yes (Hospitalization, Other)
  Sender: FDA-Public Use
  Company Number: US-BAYER-200942777NA

PATIENT
  Age: 24 Year
  Sex: Female
  Weight: 79 kg

DRUGS (8)
  1. ANTIBIOTICS [Concomitant]
  2. HYDROCHLOROTHIAZID [Concomitant]
     Indication: HYPERTENSION
     Dosage: DAILY DOSE 25 MG
     Dates: start: 20070101
  3. FLINTSTONES [Concomitant]
     Dosage: UNK UNK, QD
  4. NAPROXEN [Concomitant]
  5. DROSPIRENONE AND ETHINYL ESTRADIOL [Suspect]
     Indication: CONTRACEPTION
     Dosage: UNK
     Dates: start: 20080101, end: 20090101
  6. CALCIUM CARBONATE [Concomitant]
     Dosage: UNK UNK, ONCE
  7. YASMIN [Suspect]
     Indication: CONTRACEPTION
     Dosage: 1 DF (DAILY DOSE), QD, ORAL
     Route: 048
     Dates: start: 20080101, end: 20090615
  8. YAZ [Suspect]
     Indication: CONTRACEPTION
     Dosage: 1 DF (DAILY DOSE), QD, ORAL
     Route: 048
     Dates: start: 20080101, end: 20090615

REACTIONS (5)
  - CHOLELITHIASIS [None]
  - ABDOMINAL PAIN UPPER [None]
  - CHOLECYSTITIS ACUTE [None]
  - HYPERKALAEMIA [None]
  - BILIARY COLIC [None]
